FAERS Safety Report 6838902-9 (Version None)
Quarter: 2010Q3

REPORT INFORMATION
  Report Type: 
  Country: None (occurrence: None)
  Receive Date: 20100713
  Receipt Date: 20070706
  Transmission Date: 20110219
  Serious: No
  Sender: FDA-Public Use
  Company Number: US-PFIZER INC-2007040497

PATIENT
  Sex: Female
  Weight: 77.272 kg

DRUGS (3)
  1. CHANTIX [Suspect]
     Indication: SMOKING CESSATION THERAPY
     Dates: start: 20070401
  2. HERBAL PREPARATION [Suspect]
     Indication: DECREASED APPETITE
     Dates: start: 20070401, end: 20070511
  3. PERIOSTAT [Concomitant]
     Dates: start: 20070101

REACTIONS (2)
  - HYPERSENSITIVITY [None]
  - RASH [None]
